FAERS Safety Report 7978043-0 (Version None)
Quarter: 2011Q4

REPORT INFORMATION
  Report Type: 
  Country: None (occurrence: None)
  Receive Date: 20111214
  Receipt Date: 20091216
  Transmission Date: 20120403
  Serious: No
  Sender: FDA-Public Use
  Company Number: 2009BI041469

PATIENT
  Age: 45 Year
  Sex: Female

DRUGS (1)
  1. TYSABRI [Suspect]
     Indication: MULTIPLE SCLEROSIS
     Route: 042
     Dates: start: 20071205

REACTIONS (9)
  - GENERAL PHYSICAL HEALTH DETERIORATION [None]
  - WEIGHT DECREASED [None]
  - MEMORY IMPAIRMENT [None]
  - GASTROENTERITIS VIRAL [None]
  - HYPOREFLEXIA [None]
  - MOBILITY DECREASED [None]
  - ASTHENIA [None]
  - MUSCLE SPASMS [None]
  - STRESS [None]
